FAERS Safety Report 6321556-8 (Version None)
Quarter: 2009Q3

REPORT INFORMATION
  Report Type: 
  Country: None (occurrence: None)
  Receive Date: 20090821
  Receipt Date: 20090821
  Transmission Date: 20100115
  Serious: No
  Sender: FDA-Public Use
  Company Number: None

PATIENT
  Age: 7 Year
  Sex: Male
  Weight: 22.6799 kg

DRUGS (2)
  1. SINGULAIR [Suspect]
     Indication: SEASONAL ALLERGY
     Dosage: 1 PILL ONCE NIGHTLY BY MOUTH
     Route: 048
     Dates: start: 20090420
  2. SINGULAIR [Suspect]
     Indication: SEASONAL ALLERGY
     Dosage: 1 PILL ONCE NIGHTLY BY MOUTH
     Route: 048
     Dates: start: 20090727

REACTIONS (7)
  - CRYING [None]
  - DEPRESSION [None]
  - MORBID THOUGHTS [None]
  - MYALGIA [None]
  - NAUSEA [None]
  - PHOBIA [None]
  - SUICIDAL IDEATION [None]
